FAERS Safety Report 8089266-7 (Version None)
Quarter: 2012Q1

REPORT INFORMATION
  Report Type: 
  Country: None (occurrence: None)
  Receive Date: 20120128
  Receipt Date: 20110712
  Transmission Date: 20120608
  Serious: No
  Sender: FDA-Public Use
  Company Number: US-ABBOTT-11P-163-0717534-00

PATIENT
  Sex: Female
  Weight: 79.45 kg

DRUGS (16)
  1. HUMIRA [Suspect]
     Indication: ARTHRALGIA
  2. FLONASE [Concomitant]
     Indication: NASAL CONGESTION
     Route: 045
  3. TIZANIDINE HCL [Concomitant]
     Indication: MUSCLE SPASMS
  4. CLONAZEPAM [Concomitant]
     Indication: ANXIETY
     Route: 048
  5. OXYCONTIN [Concomitant]
     Indication: PAIN MANAGEMENT
     Route: 048
  6. COQ10 [Concomitant]
     Indication: MEDICAL DIET
     Route: 048
  7. HUMIRA [Suspect]
     Indication: CROHN'S DISEASE
     Dates: start: 20101206
  8. PROMETHAZINE [Concomitant]
     Indication: CROHN'S DISEASE
     Route: 048
  9. SIMVASTATIN [Concomitant]
     Indication: BLOOD CHOLESTEROL INCREASED
  10. HYDROCHLOROTHIAZIDE [Concomitant]
     Indication: PRODUCT USED FOR UNKNOWN INDICATION
  11. PROPRANOLOL [Concomitant]
     Indication: HYPERTENSION
     Route: 048
  12. ACETAMINOPHEN AND HYDROCODONE BITARTRATE [Concomitant]
     Indication: PAIN MANAGEMENT
  13. HYDROCODONE BITARTRATE [Concomitant]
     Indication: BACK PAIN
     Route: 048
  14. APRISO [Concomitant]
     Indication: CROHN'S DISEASE
  15. NEXIUM [Concomitant]
     Indication: GASTROOESOPHAGEAL REFLUX DISEASE
  16. LYRICA [Concomitant]
     Indication: FIBROMYALGIA

REACTIONS (2)
  - JOINT SWELLING [None]
  - ARTHRALGIA [None]
